FAERS Safety Report 18479935 (Version 2)
Quarter: 2020Q4

REPORT INFORMATION
  Report Type: Spontaneous
  Country: US (occurrence: US)
  Receive Date: 20201109
  Receipt Date: 20201119
  Transmission Date: 20210114
  Serious: Yes (Hospitalization, Other)
  Sender: FDA-Public Use
  Company Number: US-GW PHARMA-202011USGW03789

PATIENT

DRUGS (9)
  1. TOPAMAX [Concomitant]
     Active Substance: TOPIRAMATE
     Dosage: 250 MILLIGRAM, QD (1 IN THE MORNING AND 1 AND 1/2 IN THE EVENING)
     Route: 048
     Dates: start: 20201030
  2. ALLEGRA [Concomitant]
     Active Substance: FEXOFENADINE HYDROCHLORIDE
     Indication: PRODUCT USED FOR UNKNOWN INDICATION
     Dosage: 60 MILLIGRAM, QD (EVERY MORNING)
     Route: 048
  3. EPIDIOLEX [Suspect]
     Active Substance: CANNABIDIOL
     Indication: SEVERE MYOCLONIC EPILEPSY OF INFANCY
     Dosage: 500 MILLIGRAM, BID
     Route: 048
     Dates: start: 2019, end: 202011
  4. KLONOPIN [Concomitant]
     Active Substance: CLONAZEPAM
     Dosage: 1 MILLIGRAM, BID, SINCE NOV 2020
     Route: 048
  5. EPIDIOLEX [Suspect]
     Active Substance: CANNABIDIOL
     Dosage: 600 MILLIGRAM, BID
     Route: 048
     Dates: start: 202011
  6. KLONOPIN [Concomitant]
     Active Substance: CLONAZEPAM
     Indication: SEIZURE
     Dosage: 0.5 MILLIGRAM, QH (NIGHTLY). DOSE CHANGED UNK OCT 2020
     Route: 048
  7. KLONOPIN [Concomitant]
     Active Substance: CLONAZEPAM
     Dosage: 0.5 MILLIGRAM, BID, DOSE-CHANGED NOV 2020
     Route: 048
     Dates: start: 20201030
  8. TOPAMAX [Concomitant]
     Active Substance: TOPIRAMATE
     Indication: PRODUCT USED FOR UNKNOWN INDICATION
     Dosage: 50 MILLIGRAM, QH (NIGHTLY) UNTIL OCT 2020
     Route: 048
  9. KLONOPIN [Concomitant]
     Active Substance: CLONAZEPAM
     Indication: SEIZURE
     Dosage: 1 TABLET TO BUCCAL POUCH PRN
     Route: 048
     Dates: start: 20190830

REACTIONS (8)
  - Seizure [Unknown]
  - Postictal state [Recovered/Resolved]
  - Generalised tonic-clonic seizure [Unknown]
  - Seizure [Unknown]
  - Diarrhoea [Unknown]
  - Seizure [Unknown]
  - White blood cell count increased [Unknown]
  - Pyrexia [Recovered/Resolved]

NARRATIVE: CASE EVENT DATE: 202010
